FAERS Safety Report 11026055 (Version 1)
Quarter: 2015Q2

REPORT INFORMATION
  Report Type: Spontaneous
  Country: ES (occurrence: ES)
  Receive Date: 20150414
  Receipt Date: 20150414
  Transmission Date: 20150821
  Serious: Yes (Life-Threatening, Hospitalization)
  Sender: FDA-Public Use
  Company Number: ES-BRISTOL-MYERS SQUIBB COMPANY-BMS-2015-015112

PATIENT
  Age: 68 Year
  Sex: Male

DRUGS (1)
  1. YERVOY [Suspect]
     Active Substance: IPILIMUMAB
     Indication: METASTATIC MALIGNANT MELANOMA
     Dosage: 3 MG/KG, Q3WK
     Route: 042
     Dates: start: 20141210

REACTIONS (6)
  - Malnutrition [Unknown]
  - Septic shock [Unknown]
  - Hypocalcaemia [Unknown]
  - Normochromic normocytic anaemia [Unknown]
  - Enterocolitis [Recovered/Resolved]
  - Acute kidney injury [Recovered/Resolved]
